FAERS Safety Report 12958439 (Version 1)
Quarter: 2016Q4

REPORT INFORMATION
  Report Type: Spontaneous
  Country: US (occurrence: US)
  Receive Date: 20161121
  Receipt Date: 20161121
  Transmission Date: 20170207
  Serious: No
  Sender: FDA-Public Use
  Company Number: US-TEVA-621215USA

PATIENT
  Sex: Female
  Weight: 63.56 kg

DRUGS (3)
  1. DIAZEPAM. [Suspect]
     Active Substance: DIAZEPAM
     Route: 065
  2. ACETAMINOPHEN AND CODEINE [Suspect]
     Active Substance: ACETAMINOPHEN\CODEINE PHOSPHATE
     Route: 065
  3. BUTABOTOL ACETAMINOPHEN AND CAFFEINE TABLETS [Concomitant]
     Dosage: 50MG/325MG/40MG Q 4 HOURS

REACTIONS (1)
  - Headache [Unknown]
